FAERS Safety Report 4307324-7 (Version None)
Quarter: 2004Q1

REPORT INFORMATION
  Report Type: 
  Country: None (occurrence: None)
  Receive Date: 20040226
  Receipt Date: 20040212
  Transmission Date: 20041129
  Serious: Yes (Other)
  Sender: FDA-Public Use
  Company Number: 2004-BP-01058BP

PATIENT
  Age: 31 Year
  Sex: Female

DRUGS (5)
  1. VIRAMUNE [Suspect]
     Dosage: 400 MG, PO
     Route: 048
  2. DDI (DIDANOSINE) [Suspect]
     Dosage: 400 MG, PO
     Route: 048
     Dates: end: 20040126
  3. ZERIT [Suspect]
     Dosage: 80 MG, PO
     Route: 048
     Dates: end: 20040126
  4. TRIZIVIR [Suspect]
     Dosage: SEE TEXT (2 DAILY), PO
     Route: 048
     Dates: start: 20040126
  5. ZIDOVUDINE [Suspect]
     Dosage: SEE TEXT(SEE TEXT. COURSE 1:2 MG/KG), IV
     Route: 042
     Dates: start: 20040209, end: 20040209

REACTIONS (4)
  - COMPLICATIONS OF MATERNAL EXPOSURE TO THERAPEUTIC DRUGS [None]
  - MATERNAL DRUGS AFFECTING FOETUS [None]
  - STILLBIRTH [None]
  - TWIN PREGNANCY [None]
